FAERS Safety Report 7664141 (Version 2)
Quarter: 2013Q3

REPORT INFORMATION
  Report Type: Spontaneous
  Country: CH (occurrence: CH)
  Receive Date: 20101111
  Receipt Date: 20130718
  Transmission Date: 20140515
  Serious: Yes (Other)
  Sender: FDA-Public Use
  Company Number: CH-BRISTOL-MYERS SQUIBB COMPANY-15013139

PATIENT
  Age: 39 Year
  Sex: Female

DRUGS (1)
  1. APROVEL [Suspect]
     Indication: ESSENTIAL HYPERTENSION
     Dates: end: 20100211

REACTIONS (3)
  - Caesarean section [Unknown]
  - Pregnancy [Recovered/Resolved]
  - Live birth [Unknown]
